FAERS Safety Report 8074784-8 (Version None)
Quarter: 2012Q1

REPORT INFORMATION
  Report Type: 
  Country: None (occurrence: None)
  Receive Date: 20120126
  Receipt Date: 20120123
  Transmission Date: 20120608
  Serious: No
  Sender: FDA-Public Use
  Company Number: US-PFIZER INC-2012018610

PATIENT
  Sex: Female
  Weight: 70.295 kg

DRUGS (4)
  1. MULTI-VITAMINS [Concomitant]
     Dosage: UNK
  2. SYNTHROID [Concomitant]
     Indication: HYPOTHYROIDISM
     Dosage: UNK
  3. NICOTROL [Suspect]
     Indication: SMOKING CESSATION THERAPY
     Dosage: UNK, 2X/DAY
     Route: 055
     Dates: start: 20111231
  4. CRESTOR [Concomitant]
     Indication: BLOOD CHOLESTEROL INCREASED
     Dosage: UNK

REACTIONS (1)
  - TOBACCO USER [None]
